FAERS Safety Report 13858408 (Version 2)
Quarter: 2019Q1

REPORT INFORMATION
  Report Type: Spontaneous
  Country: US (occurrence: US)
  Receive Date: 20170811
  Receipt Date: 20190213
  Transmission Date: 20190417
  Serious: Yes (Hospitalization)
  Sender: FDA-Public Use
  Company Number: US-PROCTER_AND_GAMBLE-GS17084260

PATIENT
  Sex: Male

DRUGS (1)
  1. OLD SPICE KRAKENGARD [Suspect]
     Active Substance: ALUMINUM ZIRCONIUM TRICHLOROHYDREX GLY
     Route: 061

REACTIONS (4)
  - Deformity [Not Recovered/Not Resolved]
  - Rash generalised [Not Recovered/Not Resolved]
  - Product administered at inappropriate site [Unknown]
  - Pruritus [Not Recovered/Not Resolved]
